FAERS Safety Report 9160411 (Version 3)
Quarter: 2014Q3

REPORT INFORMATION
  Report Type: Spontaneous
  Country: DE (occurrence: None)
  Receive Date: 20130219
  Receipt Date: 20140808
  Transmission Date: 20150326
  Serious: Yes (Congenital Anomaly)
  Sender: FDA-Public Use
  Company Number: VAL_01405_2013

PATIENT
  Age: 1 Day
  Sex: Male

DRUGS (8)
  1. TRUVADA [Suspect]
     Active Substance: EMTRICITABINE\TENOFOVIR DISOPROXIL FUMARATE
     Indication: PRODUCT USED FOR UNKNOWN INDICATION
     Dosage: MATERNAL, 240/245 MG/DAY TRANSPLACENTAL
     Route: 064
  2. NIFEDIPINE (NIFEDIPINE) (NIFEDIPINE) [Suspect]
     Active Substance: NIFEDIPINE
     Indication: PRODUCT USED FOR UNKNOWN INDICATION
     Dosage: MATERNAL, 40 MG/DAY TRANSPLACENTAL?
     Route: 064
  3. KALETRA [Suspect]
     Active Substance: LOPINAVIR\RITONAVIR
     Indication: PRODUCT USED FOR UNKNOWN INDICATION
     Dosage: MATERNAL, 500 MG/DAY TRANSPLACENTAL
     Route: 064
  4. ENALAPRIL [Suspect]
     Active Substance: ENALAPRIL
     Indication: PRODUCT USED FOR UNKNOWN INDICATION
     Dosage: MATERNAL, 20 MG/DAY TRANSPLACENTAL?
     Route: 064
     Dates: end: 20080918
  5. BELOC-ZOC COMP [Suspect]
     Active Substance: HYDROCHLOROTHIAZIDE\METOPROLOL SUCCINATE
     Indication: PRODUCT USED FOR UNKNOWN INDICATION
     Dosage: DF TRANSPLACENTAL
     Route: 064
     Dates: start: 20080605, end: 20090226
  6. METHYLDOPA. [Suspect]
     Active Substance: METHYLDOPA
     Indication: PRODUCT USED FOR UNKNOWN INDICATION
     Dosage: MATERNAL, 250 MG/DAY TRANSPLACENTAL
     Route: 064
  7. CARMEN [Suspect]
     Active Substance: LERCANIDIPINE
     Indication: PRODUCT USED FOR UNKNOWN INDICATION
     Dosage: MATERNAL, 20 MG/DAY TRANSPLACENTAL
     Route: 064
  8. VOTUM [Suspect]
     Active Substance: OLMESARTAN MEDOXOMIL
     Indication: PRODUCT USED FOR UNKNOWN INDICATION
     Dosage: MATERNAL, 40 MG/DAY TRANSPLACENTAL
     Route: 064

REACTIONS (6)
  - Kidney duplex [None]
  - Maternal drugs affecting foetus [None]
  - Caesarean section [None]
  - Congenital choroid plexus cyst [None]
  - Congenital hearing disorder [None]
  - Supernumerary nipple [None]
